FAERS Safety Report 16067053 (Version 1)
Quarter: 2019Q2

REPORT INFORMATION
  Report Type: Spontaneous
  Country: US (occurrence: US)
  Receive Date: 20190313
  Receipt Date: 20190313
  Transmission Date: 20190711
  Serious: Yes (Disabling)
  Sender: FDA-Public Use
  Company Number: None

PATIENT
  Age: 47 Year
  Sex: Female
  Weight: 63 kg

DRUGS (1)
  1. LEVAFLOXACIN [Suspect]
     Active Substance: LEVOFLOXACIN
     Indication: UTERINE INFECTION

REACTIONS (13)
  - Medial tibial stress syndrome [None]
  - Discomfort [None]
  - Insomnia [None]
  - Pain [None]
  - Cardiac disorder [None]
  - Morbid thoughts [None]
  - Musculoskeletal stiffness [None]
  - Tachyphrenia [None]
  - Tremor [None]
  - Thyroid disorder [None]
  - Tendon pain [None]
  - Tendonitis [None]
  - Fatigue [None]

NARRATIVE: CASE EVENT DATE: 20170320
